FAERS Safety Report 10181635 (Version 18)
Quarter: 2016Q1

REPORT INFORMATION
  Report Type: Report from Study
  Country: US (occurrence: US)
  Receive Date: 20140519
  Receipt Date: 20160301
  Transmission Date: 20160525
  Serious: Yes (Hospitalization, Other)
  Sender: FDA-Public Use
  Company Number: US-SA-2014SA061575

PATIENT
  Age: 64 Year
  Sex: Female
  Weight: 63.5 kg

DRUGS (20)
  1. AUBAGIO [Suspect]
     Active Substance: TERIFLUNOMIDE
     Indication: MULTIPLE SCLEROSIS
     Route: 048
     Dates: start: 20140429, end: 20141201
  2. AUBAGIO [Suspect]
     Active Substance: TERIFLUNOMIDE
     Indication: MULTIPLE SCLEROSIS
     Route: 048
  3. DIURETICS [Concomitant]
     Active Substance: UNSPECIFIED INGREDIENT
  4. ATIVAN [Concomitant]
     Active Substance: LORAZEPAM
  5. ANTIHYPERTENSIVES [Concomitant]
     Active Substance: UNSPECIFIED INGREDIENT
  6. VIIBRYD [Concomitant]
     Active Substance: VILAZODONE HYDROCHLORIDE
  7. AVONEX [Concomitant]
     Active Substance: INTERFERON BETA-1A
  8. PLAVIX [Concomitant]
     Active Substance: CLOPIDOGREL BISULFATE
  9. PHENERGAN [Concomitant]
     Active Substance: PROMETHAZINE HYDROCHLORIDE
  10. STOOL SOFTENER [Concomitant]
     Active Substance: DOCUSATE CALCIUM
  11. CARVEDILOL. [Concomitant]
     Active Substance: CARVEDILOL
  12. TECFIDERA [Suspect]
     Active Substance: DIMETHYL FUMARATE
     Indication: PRODUCT USED FOR UNKNOWN INDICATION
     Route: 065
  13. POTASSIUM [Concomitant]
     Active Substance: POTASSIUM
     Route: 042
  14. BETASERON [Suspect]
     Active Substance: INTERFERON BETA-1B
     Indication: MULTIPLE SCLEROSIS
     Route: 065
     Dates: start: 200309, end: 201404
  15. REBIF [Suspect]
     Active Substance: INTERFERON BETA-1A
     Indication: PRODUCT USED FOR UNKNOWN INDICATION
     Route: 065
  16. PREVACID [Concomitant]
     Active Substance: LANSOPRAZOLE
     Dosage: STARTED: 4 MONTHS BEFORE
  17. CARDIAC THERAPY [Concomitant]
     Active Substance: UNSPECIFIED INGREDIENT
  18. POTASSIUM CHLORIDE. [Concomitant]
     Active Substance: POTASSIUM CHLORIDE
  19. KEFLEX [Concomitant]
     Active Substance: CEPHALEXIN
  20. EXFORGE [Concomitant]
     Active Substance: AMLODIPINE BESYLATE\VALSARTAN
     Indication: CARDIAC DISORDER

REACTIONS (45)
  - Dysuria [Unknown]
  - Multiple sclerosis relapse [Unknown]
  - Fatigue [Unknown]
  - Erythema [Not Recovered/Not Resolved]
  - Memory impairment [Unknown]
  - Emotional disorder [Unknown]
  - Injection site reaction [Not Recovered/Not Resolved]
  - Injection site mass [Not Recovered/Not Resolved]
  - Dizziness [Unknown]
  - Asthenia [Unknown]
  - Malaise [Unknown]
  - Burning sensation [Unknown]
  - Panic attack [Unknown]
  - Paraesthesia [Unknown]
  - Weight abnormal [Unknown]
  - Hypotension [Unknown]
  - Repair of imperforate rectum [Unknown]
  - Fluid retention [Unknown]
  - Blister [Unknown]
  - Pain in extremity [Unknown]
  - Malaise [Unknown]
  - Bladder repair [Unknown]
  - Decreased appetite [Unknown]
  - Chest pain [Unknown]
  - Thinking abnormal [Unknown]
  - Nausea [Unknown]
  - Activities of daily living impaired [Unknown]
  - Urinary tract infection [Unknown]
  - Abasia [Unknown]
  - Tremor [Unknown]
  - Thinking abnormal [Unknown]
  - Depression [Unknown]
  - Gastritis [Unknown]
  - Anxiety [Unknown]
  - Weight decreased [Unknown]
  - Diarrhoea [Unknown]
  - Rash [Unknown]
  - Hypertension [Unknown]
  - Chest discomfort [Unknown]
  - Spinal operation [Unknown]
  - Chromaturia [Unknown]
  - Unevaluable event [Unknown]
  - Contusion [Not Recovered/Not Resolved]
  - Crying [Unknown]
  - Irritable bowel syndrome [Unknown]

NARRATIVE: CASE EVENT DATE: 2003
